FAERS Safety Report 7550565-6 (Version None)
Quarter: 2011Q2

REPORT INFORMATION
  Report Type: 
  Country: None (occurrence: None)
  Receive Date: 20110616
  Receipt Date: 20110606
  Transmission Date: 20111010
  Serious: Yes (Hospitalization)
  Sender: FDA-Public Use
  Company Number: US-BIOGENIDEC-2011BI017904

PATIENT
  Age: 56 Year
  Sex: Male

DRUGS (10)
  1. PROZAC [Concomitant]
     Indication: DEPRESSION
  2. TYSABRI [Suspect]
     Indication: MULTIPLE SCLEROSIS
     Route: 042
     Dates: start: 20090929
  3. VICODIN [Concomitant]
     Indication: PAIN
  4. FLOMAX [Concomitant]
  5. XANAX [Concomitant]
  6. BACLOFEN [Concomitant]
  7. BUSPAR [Concomitant]
     Indication: POST-TRAUMATIC STRESS DISORDER
  8. PROVIGIL [Concomitant]
  9. AMBIEN [Concomitant]
  10. ATENOLOL [Concomitant]

REACTIONS (2)
  - DIABETIC KETOACIDOSIS [None]
  - DEPRESSION [None]
